FAERS Safety Report 20166244 (Version 1)
Quarter: 2021Q4

REPORT INFORMATION
  Report Type: Spontaneous
  Country: IT (occurrence: IT)
  Receive Date: 20211209
  Receipt Date: 20211209
  Transmission Date: 20220304
  Serious: Yes (Other)
  Sender: FDA-Public Use
  Company Number: IT-ALKEM LABORATORIES LIMITED-IT-ALKEM-2021-03527

PATIENT
  Age: 28 Year
  Sex: Female

DRUGS (2)
  1. ZOLPIDEM [Suspect]
     Active Substance: ZOLPIDEM TARTRATE
     Indication: Product used for unknown indication
     Dosage: 80 MILLIGRAM, QD
     Route: 048
  2. OLANZAPINE [Suspect]
     Active Substance: OLANZAPINE
     Indication: Product used for unknown indication
     Dosage: 2.5 MILLIGRAM, HS
     Route: 065

REACTIONS (9)
  - Drug abuse [Unknown]
  - Hallucination [Unknown]
  - Prescription drug used without a prescription [Unknown]
  - Headache [Unknown]
  - Somnolence [Unknown]
  - Intentional product misuse [Unknown]
  - Dissociative disorder [Unknown]
  - Hypersomnia [Unknown]
  - Amnesia [Unknown]
